FAERS Safety Report 14797218 (Version 1)
Quarter: 2018Q2

REPORT INFORMATION
  Report Type: Spontaneous
  Country: FR (occurrence: FR)
  Receive Date: 20180423
  Receipt Date: 20180423
  Transmission Date: 20180711
  Serious: Yes (Other)
  Sender: FDA-Public Use
  Company Number: FR-MERCK KGAA-2046324

PATIENT
  Age: 73 Year
  Sex: Female

DRUGS (1)
  1. NOVOTHYROX [Suspect]
     Active Substance: LEVOTHYROXINE SODIUM
     Indication: POST PROCEDURAL HYPOTHYROIDISM
     Dates: start: 201706, end: 201709

REACTIONS (18)
  - Hepatitis [None]
  - Weight increased [Recovered/Resolved]
  - Headache [None]
  - Gait disturbance [None]
  - Musculoskeletal stiffness [None]
  - Loss of personal independence in daily activities [None]
  - Asthenia [Recovered/Resolved]
  - Tachycardia [None]
  - Myalgia [Recovered/Resolved]
  - Fatigue [None]
  - Aggression [None]
  - Mood swings [None]
  - Psychiatric symptom [None]
  - Palpitations [None]
  - Feeling abnormal [None]
  - Muscle spasms [Recovered/Resolved]
  - Depression [None]
  - Arthralgia [Recovered/Resolved]

NARRATIVE: CASE EVENT DATE: 2017
